FAERS Safety Report 23618090 (Version 3)
Quarter: 2024Q1

REPORT INFORMATION
  Report Type: Spontaneous
  Country: US (occurrence: US)
  Receive Date: 20240311
  Receipt Date: 20240321
  Transmission Date: 20240409
  Serious: No
  Sender: FDA-Public Use
  Company Number: US-PFIZER INC-PV202300132696

PATIENT
  Age: 66 Year
  Sex: Female

DRUGS (1)
  1. IBRANCE [Suspect]
     Active Substance: PALBOCICLIB
     Indication: Breast cancer
     Dosage: TAKE 1 TABLET (125 MG) DAILY FOR 21 DAYS, OFF 7 DAYS
     Route: 048

REACTIONS (2)
  - Illness [Unknown]
  - Product dose omission in error [Unknown]
